FAERS Safety Report 13659754 (Version 1)
Quarter: 2017Q2

REPORT INFORMATION
  Report Type: Spontaneous
  Country: US (occurrence: US)
  Receive Date: 20170616
  Receipt Date: 20170616
  Transmission Date: 20170830
  Serious: Yes (Hospitalization, Disabling)
  Sender: FDA-Public Use
  Company Number: None

PATIENT
  Age: 50 Year
  Sex: Female
  Weight: 135.17 kg

DRUGS (18)
  1. VENTOLIN HF [Concomitant]
  2. DIPHENENNOXYTALE [Concomitant]
  3. FLUCONAZOLE. [Concomitant]
     Active Substance: FLUCONAZOLE
  4. JANUVIA [Suspect]
     Active Substance: SITAGLIPTIN PHOSPHATE
     Indication: DIABETES MELLITUS
     Route: 048
     Dates: start: 20150415, end: 20150608
  5. GLIMEPRID [Concomitant]
     Active Substance: GLIMEPIRIDE
  6. TRAMADOL. [Concomitant]
     Active Substance: TRAMADOL
  7. SOMA [Concomitant]
     Active Substance: CARISOPRODOL
  8. ALBUTEROL SULFATE. [Concomitant]
     Active Substance: ALBUTEROL SULFATE
  9. PANTOPRAZOLSOL [Concomitant]
  10. CETIRIZION HCL [Concomitant]
  11. BEZONATO [Concomitant]
  12. NARCO [Concomitant]
  13. LANTUS [Concomitant]
     Active Substance: INSULIN GLARGINE
  14. LEVOTHYROXINE. [Concomitant]
     Active Substance: LEVOTHYROXINE
  15. AMITRIPTYLINE HCL [Concomitant]
     Active Substance: AMITRIPTYLINE
  16. SIMVASTATIN. [Concomitant]
     Active Substance: SIMVASTATIN
  17. ALPRAZOLAM. [Concomitant]
     Active Substance: ALPRAZOLAM
  18. PROMETHAZINE WITH CODEINE [Concomitant]
     Active Substance: CODEINE PHOSPHATE\PROMETHAZINE HYDROCHLORIDE

REACTIONS (3)
  - Pain [None]
  - Drug screen positive [None]
  - Therapy cessation [None]

NARRATIVE: CASE EVENT DATE: 20170313
